FAERS Safety Report 8244146-9 (Version None)
Quarter: 2012Q1

REPORT INFORMATION
  Report Type: 
  Country: None (occurrence: None)
  Receive Date: 20120329
  Receipt Date: 20111209
  Transmission Date: 20120608
  Serious: No
  Sender: FDA-Public Use
  Company Number: US-MYLANLABS-2011S1025333

PATIENT
  Age: 65 Year
  Sex: Female

DRUGS (8)
  1. AMLODIPINE BESYLATE [Suspect]
     Indication: BLOOD PRESSURE INCREASED
     Route: 048
     Dates: start: 20110301, end: 20110401
  2. PREVACID [Concomitant]
  3. NEURONTIN [Concomitant]
  4. ZIAC [Concomitant]
     Indication: BLOOD PRESSURE INCREASED
  5. NORCO [Concomitant]
     Dosage: 10/325MG
  6. ASPIRIN [Concomitant]
  7. CYMBALTA [Concomitant]
  8. CRESTOR [Concomitant]
     Indication: BLOOD CHOLESTEROL INCREASED

REACTIONS (3)
  - BLOOD PRESSURE INCREASED [None]
  - MUSCLE SPASMS [None]
  - DRUG INEFFECTIVE [None]
